FAERS Safety Report 8714980 (Version 2)
Quarter: 2012Q4

REPORT INFORMATION
  Report Type: 
  Country: US (occurrence: US)
  Receive Date: 20120809
  Receipt Date: 20120903
  Transmission Date: 20130627
  Serious: Yes (Hospitalization, Other)
  Sender: FDA-Public Use
  Company Number: PHEH2012US015237

PATIENT
  Age: 62 None
  Sex: Female
  Weight: 71.61 kg

DRUGS (29)
  1. GILENYA [Suspect]
     Indication: MULTIPLE SCLEROSIS
     Dosage: 0.5 mg, QD
     Route: 048
     Dates: end: 201207
  2. PERCOCET [Concomitant]
     Dosage: 5-325 mg
  3. ECOTRIN [Concomitant]
     Dosage: 81 mg, QD
     Route: 048
  4. VITAMIN D3 [Concomitant]
     Dosage: 1000 IU, QD
     Route: 048
  5. PROZAC [Concomitant]
     Dosage: 20 mg, QD
     Route: 048
  6. ZOCOR [Concomitant]
     Dosage: 80 mg, QD
     Route: 048
  7. AMBIEN [Concomitant]
     Dosage: 10 mg, UNK
  8. IMODIUM [Concomitant]
     Dosage: 2 mg, UNK
  9. LYRICA [Concomitant]
     Dosage: 50 mg, TID
     Route: 048
  10. VALIUM [Concomitant]
     Dosage: 5 mg, UNK
  11. NORMAL SALINE [Concomitant]
     Dosage: 500 ml, Q12H
     Route: 040
  12. NITROSTAT [Concomitant]
     Dosage: 0.4 mg, UNK
  13. TYLENOL [Concomitant]
     Dosage: 650 mg, UNK
  14. SENOKOT-S [Concomitant]
     Dosage: 2 DF, UNK
  15. DULCOLAX [Concomitant]
     Dosage: 10 mg, UNK
  16. MILK OF MAGNESIA [Concomitant]
     Dosage: 2400 mg, UNK
  17. MAALOX [Concomitant]
     Dosage: 200-200-20 mg/5ml 30 ml
  18. K-DUR [Concomitant]
     Dosage: 20 MEq and 40 MEq
  19. KLOR-CON [Concomitant]
     Dosage: 20 MEq and 40 MEq
  20. POTASSIUM CHLORIDE [Concomitant]
     Dosage: 20 MEq/100ml
  21. ZOFRAN [Concomitant]
     Dosage: 4 mg, UNK
  22. COMPAZINE [Concomitant]
     Dosage: 5 mg, UNK
  23. PEPCID [Concomitant]
     Dosage: 20 mg, UNK
  24. MULTIHANCE [Concomitant]
     Dosage: 13 ml, UNK
  25. NORCO [Concomitant]
     Dosage: 5-325 mg per tablet, 1-2 DF
  26. AMBIEN [Concomitant]
     Dosage: 5 mg, UNK
  27. FAMOTIDINE [Concomitant]
     Dosage: 20 mg, UNK
  28. SODIUM CHLORIDE [Concomitant]
     Dosage: 2 ml, UNK
  29. K-PHOS NEUTRAL [Concomitant]
     Dosage: 1 DF, UNK

REACTIONS (31)
  - Posterior reversible encephalopathy syndrome [Recovered/Resolved]
  - Crying [Unknown]
  - Frustration [Unknown]
  - Mental disorder [Unknown]
  - Hypertension [Unknown]
  - Emotional disorder [Unknown]
  - Agitation [Recovering/Resolving]
  - Anxiety [Unknown]
  - Delirium [Unknown]
  - Mental status changes [Unknown]
  - Convulsion [Unknown]
  - Renal failure acute [Unknown]
  - Urinary retention [Unknown]
  - Blood creatinine increased [Unknown]
  - Memory impairment [Unknown]
  - Brain oedema [Unknown]
  - Blood alkaline phosphatase increased [Unknown]
  - Blood urine present [Unknown]
  - Bacterial test [Unknown]
  - pH urine increased [Unknown]
  - Stress [Unknown]
  - Aggression [Unknown]
  - Decreased appetite [Unknown]
  - Irritable bowel syndrome [Unknown]
  - Heart rate increased [Unknown]
  - Blood glucose increased [Unknown]
  - Visual acuity reduced [Unknown]
  - Blood pressure decreased [Unknown]
  - Depression [Unknown]
  - Vision blurred [Recovering/Resolving]
  - Weight decreased [Unknown]
